FAERS Safety Report 5828980-8 (Version None)
Quarter: 2008Q3

REPORT INFORMATION
  Report Type: 
  Country: None (occurrence: None)
  Receive Date: 20080731
  Receipt Date: 20080722
  Transmission Date: 20090109
  Serious: Yes (Hospitalization, Other)
  Sender: FDA-Public Use
  Company Number: PHHY2008DE14960

PATIENT

DRUGS (5)
  1. CLOZAPINE [Suspect]
     Dosage: 200 MG/DAY
     Route: 048
  2. VALPROIC ACID [Concomitant]
  3. PERAZINE [Concomitant]
  4. CLOBAZAM [Concomitant]
  5. DEXAMETHASONE [Concomitant]

REACTIONS (1)
  - BRAIN NEOPLASM [None]
